FAERS Safety Report 7150436-3 (Version None)
Quarter: 2010Q4

REPORT INFORMATION
  Report Type: 
  Country: None (occurrence: None)
  Receive Date: 20101210
  Receipt Date: 20101129
  Transmission Date: 20110411
  Serious: Yes (Hospitalization, Other)
  Sender: FDA-Public Use
  Company Number: PHHY2010CA81376

PATIENT
  Sex: Female

DRUGS (2)
  1. ACLASTA [Suspect]
     Dosage: UNK
     Dates: start: 20091201
  2. ACLASTA [Suspect]
     Dosage: UNK
     Dates: start: 20100119

REACTIONS (4)
  - PAIN [None]
  - PELVIC FRACTURE [None]
  - SCIATICA [None]
  - SLUGGISHNESS [None]
